FAERS Safety Report 9870100 (Version 1)
Quarter: 2014Q1

REPORT INFORMATION
  Report Type: Spontaneous
  Country: US (occurrence: US)
  Receive Date: 20140205
  Receipt Date: 20140205
  Transmission Date: 20141002
  Serious: Yes (Other)
  Sender: FDA-Public Use
  Company Number: US-AMGEN-USASP2014007104

PATIENT
  Age: 53 Year
  Sex: Female
  Weight: 85.26 kg

DRUGS (2)
  1. ENBREL [Suspect]
     Indication: PSORIASIS
     Dosage: UNK
     Route: 058
     Dates: start: 2010, end: 2011
  2. ENBREL [Suspect]
     Indication: PSORIATIC ARTHROPATHY

REACTIONS (4)
  - Precancerous skin lesion [Unknown]
  - Cutaneous tuberculosis [Unknown]
  - Drug hypersensitivity [Unknown]
  - Oedema peripheral [Unknown]
